FAERS Safety Report 8222748-3 (Version None)
Quarter: 2012Q1

REPORT INFORMATION
  Report Type: 
  Country: None (occurrence: None)
  Receive Date: 20120315
  Receipt Date: 20120306
  Transmission Date: 20120608
  Serious: Yes (Death, Life-Threatening)
  Sender: FDA-Public Use
  Company Number: 2007SP017492

PATIENT
  Age: 65 Year
  Sex: Male
  Weight: 63 kg

DRUGS (7)
  1. DEPAKENE [Concomitant]
  2. IRINOTECAN HCL [Concomitant]
  3. NEO-MERCAZOLE TAB [Concomitant]
  4. ZONISAMIDE [Concomitant]
  5. TEMODAL [Suspect]
     Indication: GLIOBLASTOMA MULTIFORME
     Dosage: 150 MG/M2;QD;PO 150 MG/M2;QD;PO
     Route: 048
     Dates: start: 20061102, end: 20061106
  6. TEMODAL [Suspect]
     Indication: GLIOBLASTOMA MULTIFORME
     Dosage: 150 MG/M2;QD;PO 150 MG/M2;QD;PO
     Route: 048
     Dates: start: 20061208, end: 20061212
  7. TEMODAL [Suspect]
     Indication: GLIOBLASTOMA MULTIFORME
     Dosage: 150 MG/M2;QD;PO 150 MG/M2;QD;PO
     Route: 048
     Dates: start: 20070114, end: 20070118

REACTIONS (8)
  - PNEUMOCYSTIS JIROVECI PNEUMONIA [None]
  - RENAL IMPAIRMENT [None]
  - INTERSTITIAL LUNG DISEASE [None]
  - HEPATIC FUNCTION ABNORMAL [None]
  - MULTI-ORGAN FAILURE [None]
  - HYPOALBUMINAEMIA [None]
  - SEPSIS [None]
  - LYMPHOCYTE COUNT DECREASED [None]
